FAERS Safety Report 11508908 (Version 1)
Quarter: 2015Q3

REPORT INFORMATION
  Report Type: Spontaneous
  Country: US (occurrence: US)
  Receive Date: 20150903
  Receipt Date: 20150903
  Transmission Date: 20151125
  Serious: No
  Sender: FDA-Public Use
  Company Number: US-ELI_LILLY_AND_COMPANY-US201002002435

PATIENT
  Sex: Female

DRUGS (4)
  1. HUMALOG MIX50/50 [Suspect]
     Active Substance: INSULIN LISPRO
     Dosage: 7 U, EACH EVENING
     Dates: start: 200908
  2. COUMADIN [Concomitant]
     Active Substance: WARFARIN SODIUM
  3. HUMALOG MIX50/50 [Suspect]
     Active Substance: INSULIN LISPRO
     Dosage: 10 U, OTHER
     Dates: start: 200908
  4. HUMALOG MIX50/50 [Suspect]
     Active Substance: INSULIN LISPRO
     Indication: DIABETES MELLITUS
     Dosage: 3 U, EACH MORNING
     Dates: start: 200908

REACTIONS (1)
  - Cardiac disorder [Unknown]
